FAERS Safety Report 4939523-5 (Version None)
Quarter: 2006Q1

REPORT INFORMATION
  Report Type: 
  Country: None (occurrence: None)
  Receive Date: 20060306
  Receipt Date: 20060123
  Transmission Date: 20060701
  Serious: No
  Sender: FDA-Public Use
  Company Number: 06H-087-0304392-00

PATIENT
  Age: 57 Year
  Sex: Male
  Weight: 67 kg

DRUGS (22)
  1. PRECEDEX [Suspect]
     Indication: SEDATION
     Dosage: SEE IMAGE
     Route: 042
     Dates: start: 20051213, end: 20051215
  2. PRECEDEX [Suspect]
     Indication: SEDATION
     Dosage: SEE IMAGE
     Route: 042
     Dates: start: 20051213, end: 20051215
  3. PRECEDEX [Suspect]
     Indication: SEDATION
     Dosage: SEE IMAGE
     Route: 042
     Dates: start: 20051213, end: 20051215
  4. ROPIVACAINE (ROPIVACAINE) [Suspect]
     Indication: POSTOPERATIVE ANALGESIA
     Dates: start: 20051213, end: 20051213
  5. SEVOFLURANE [Concomitant]
  6. PROPOFOL [Concomitant]
  7. SUXAMETHONIUM [Concomitant]
  8. PANCURONIUM [Concomitant]
  9. VECURONIUM BROMIDE [Concomitant]
  10. MEPIVACAINE HCL [Concomitant]
  11. ROPIVACAINE [Concomitant]
  12. CEFAZOLIN [Concomitant]
  13. MORPHINE [Concomitant]
  14. EPHEDRINE SUL CAP [Concomitant]
  15. ATROPINE SULFATE [Concomitant]
  16. NEOSTIGMINE [Concomitant]
  17. FLAVIN ADENLINE DINUCLEOTIDE [Concomitant]
  18. GLUTATHIONE [Concomitant]
  19. STRONGER NEO-MINOPHAGEN C (STRONG NEO MINOPHAGEN C) [Concomitant]
  20. FAMOTIDINE [Concomitant]
  21. FUROSEMIDE [Concomitant]
  22. DOPAMINE [Concomitant]

REACTIONS (2)
  - BLOOD PRESSURE DECREASED [None]
  - HEPATIC FUNCTION ABNORMAL [None]
